FAERS Safety Report 4412840-3 (Version None)
Quarter: 2004Q3

REPORT INFORMATION
  Report Type: 
  Country: None (occurrence: None)
  Receive Date: 20040727
  Receipt Date: 20040717
  Transmission Date: 20050211
  Serious: Yes (Other)
  Sender: FDA-Public Use
  Company Number: 2004-118695-NL

PATIENT
  Age: 73 Year
  Sex: Female

DRUGS (1)
  1. ZEMURON [Suspect]
     Indication: NEUROMUSCULAR BLOCKADE
     Dosage: DF INTRAVENOUS (NOS)
     Route: 042
     Dates: start: 20040716

REACTIONS (1)
  - MUSCULAR WEAKNESS [None]
